FAERS Safety Report 9758037 (Version 1)
Quarter: 2013Q4

REPORT INFORMATION
  Report Type: Spontaneous
  Country: US (occurrence: US)
  Receive Date: 20131216
  Receipt Date: 20131216
  Transmission Date: 20140711
  Serious: Yes (Other)
  Sender: FDA-Public Use
  Company Number: US-TEVA-411595USA

PATIENT
  Age: 31 Year
  Sex: Female

DRUGS (2)
  1. PARAGARD 380A [Suspect]
     Indication: CONTRACEPTION
     Dates: start: 20130429, end: 20130429
  2. MULTIVITAMIN [Concomitant]

REACTIONS (2)
  - Uterine perforation [Recovered/Resolved]
  - Muscle spasms [Recovered/Resolved]
